FAERS Safety Report 23761646 (Version 1)
Quarter: 2024Q2

REPORT INFORMATION
  Report Type: Report from Study
  Country: DE (occurrence: DE)
  Receive Date: 20240419
  Receipt Date: 20240419
  Transmission Date: 20240715
  Serious: Yes (Hospitalization)
  Sender: FDA-Public Use
  Company Number: DE-JNJFOC-20240435826

PATIENT
  Age: 8 Decade
  Sex: Female
  Weight: 74 kg

DRUGS (3)
  1. DARZALEX [Suspect]
     Active Substance: DARATUMUMAB
     Indication: Plasma cell myeloma
     Dosage: LAST ADMINISTRATION DATE; 02-APR-2024? 30 DAYS AFTER THERAPY: 02-MAY-2024
     Route: 058
     Dates: start: 20240319
  2. DEXAMETHASONE [Suspect]
     Active Substance: DEXAMETHASONE
     Indication: Plasma cell myeloma
     Dosage: LAST ADMINISTRATION BEFORE SAE: 05-APR-2024?30 DAYS AFTER THERAPY: 05-MAY-2024
     Route: 048
     Dates: start: 20240319
  3. LENALIDOMIDE [Suspect]
     Active Substance: LENALIDOMIDE
     Indication: Plasma cell myeloma
     Dosage: LAST ADMINISTRATION BEFORE SAE: 05-APR-2024 ?30 DAYS AFTER THERAPY: 05-MAY-2024
     Route: 048
     Dates: start: 20240319

REACTIONS (2)
  - Cytopenia [Recovering/Resolving]
  - Pyrexia [Recovering/Resolving]

NARRATIVE: CASE EVENT DATE: 20240409
